FAERS Safety Report 9096327 (Version 2)
Quarter: 2013Q4

REPORT INFORMATION
  Report Type: Report from Study
  Country: US (occurrence: US)
  Receive Date: 20130207
  Receipt Date: 20131004
  Transmission Date: 20140711
  Serious: Yes (Other)
  Sender: FDA-Public Use
  Company Number: US-ELI_LILLY_AND_COMPANY-US201211007786

PATIENT
  Sex: Female

DRUGS (2)
  1. TERIPARATIDE [Suspect]
     Indication: OSTEOPOROSIS
     Dosage: 20 UG, QD
     Dates: start: 201209
  2. TERIPARATIDE [Suspect]
     Indication: OSTEOPENIA
     Dosage: 20 UG, QD

REACTIONS (4)
  - Spinal fracture [Unknown]
  - Fractured sacrum [Unknown]
  - Fall [Unknown]
  - Pain [Unknown]
